FAERS Safety Report 16652337 (Version 1)
Quarter: 2019Q3

REPORT INFORMATION
  Report Type: Spontaneous
  Country: US (occurrence: US)
  Receive Date: 20190617
  Receipt Date: 20190617
  Transmission Date: 20191004
  Serious: Yes (Death)
  Sender: FDA-Public Use
  Company Number: None

PATIENT
  Age: 55 Year
  Sex: Male

DRUGS (1)
  1. REVLIMID [Suspect]
     Active Substance: LENALIDOMIDE
     Indication: PLASMA CELL MYELOMA
     Route: 048
     Dates: start: 20190527

REACTIONS (4)
  - Respiratory disorder [None]
  - Deep vein thrombosis [None]
  - Pain [None]
  - Inadequate analgesia [None]

NARRATIVE: CASE EVENT DATE: 20190611
